FAERS Safety Report 8936131 (Version 1)
Quarter: 2012Q4

REPORT INFORMATION
  Report Type: Spontaneous
  Country: US (occurrence: None)
  Receive Date: 20121121
  Receipt Date: 20121121
  Transmission Date: 20130627
  Serious: Yes (Other)
  Sender: FDA-Public Use
  Company Number: JPI-P-026287

PATIENT
  Age: 42 Year
  Sex: Female
  Weight: 68.04 kg

DRUGS (9)
  1. XYREM [Suspect]
     Indication: NARCOLEPSY
     Dosage: 4.5 gm (2.25 gm, 2 in 1 D), Oral
     Route: 048
     Dates: start: 20121018
  2. XYREM [Suspect]
     Indication: EXCESSIVE DAYTIME SLEEPINESS
     Dosage: 4.5 gm (2.25 gm, 2 in 1 D), Oral
     Route: 048
     Dates: start: 20121018
  3. FENTANYL [Concomitant]
  4. FENTANYL CITRATE [Concomitant]
  5. AMITRIPTYLINE [Concomitant]
  6. LEVOTHYROXINE [Concomitant]
  7. AMPHETAMINE [Concomitant]
  8. BIESP COMPOUND HORMONE [Concomitant]
  9. OXYCODONE [Concomitant]

REACTIONS (9)
  - Malaise [None]
  - Weight decreased [None]
  - Fluid intake reduced [None]
  - Skin graft [None]
  - Skin disorder [None]
  - Staphylococcal infection [None]
  - Cellulitis [None]
  - Complications of transplant surgery [None]
  - Post procedural complication [None]
